FAERS Safety Report 4402211-8 (Version None)
Quarter: 2004Q3

REPORT INFORMATION
  Report Type: 
  Country: None (occurrence: None)
  Receive Date: 20040716
  Receipt Date: 20040702
  Transmission Date: 20050211
  Serious: No
  Sender: FDA-Public Use
  Company Number: A04200400582

PATIENT
  Age: 42 Year
  Sex: Male

DRUGS (2)
  1. ARIXTRA [Suspect]
     Indication: ARTHROSCOPY
     Dosage: 2.5 MG BID
     Route: 058
     Dates: start: 20040619, end: 20040623
  2. ARIXTRA [Suspect]
     Indication: THROMBOSIS PROPHYLAXIS
     Dosage: 2.5 MG BID
     Route: 058
     Dates: start: 20040619, end: 20040623

REACTIONS (4)
  - CHOKING SENSATION [None]
  - METABOLIC ACIDOSIS [None]
  - NAUSEA [None]
  - VOMITING [None]
